FAERS Safety Report 9533282 (Version 1)
Quarter: 2013Q3

REPORT INFORMATION
  Report Type: Spontaneous
  Country: US (occurrence: None)
  Receive Date: 20130916
  Receipt Date: 20130916
  Transmission Date: 20140515
  Serious: Yes (Other)
  Sender: FDA-Public Use
  Company Number: 2013EXPUS00133

PATIENT
  Age: 52 Year
  Sex: Female

DRUGS (1)
  1. EXPAREL [Suspect]
     Indication: PRODUCT USED FOR UNKNOWN INDICATION
     Dates: start: 20130828, end: 20130808

REACTIONS (2)
  - Muscle rigidity [None]
  - Dyspnoea [None]
